FAERS Safety Report 14679594 (Version 3)
Quarter: 2018Q4

REPORT INFORMATION
  Report Type: Spontaneous
  Country: US (occurrence: US)
  Receive Date: 20180326
  Receipt Date: 20181116
  Transmission Date: 20190204
  Serious: No
  Sender: FDA-Public Use
  Company Number: US-009507513-1803USA010348

PATIENT
  Age: 28 Year
  Sex: Female
  Weight: 134.9 kg

DRUGS (1)
  1. NEXPLANON [Suspect]
     Active Substance: ETONOGESTREL
     Dosage: 1 ROD SUBDERMALLY EVERY 3 YEARS
     Route: 059
     Dates: start: 20180208, end: 20180322

REACTIONS (3)
  - Complication of device removal [Recovered/Resolved]
  - Device deployment issue [Recovered/Resolved]
  - Device breakage [Recovered/Resolved]

NARRATIVE: CASE EVENT DATE: 20180208
